FAERS Safety Report 20559225 (Version 1)
Quarter: 2022Q1

REPORT INFORMATION
  Report Type: Spontaneous
  Country: PL (occurrence: PL)
  Receive Date: 20220307
  Receipt Date: 20220307
  Transmission Date: 20220423
  Serious: Yes (Other)
  Sender: FDA-Public Use
  Company Number: PL-MLMSERVICE-20220216-3377347-1

PATIENT
  Age: 9 Year
  Sex: Female

DRUGS (3)
  1. HYDROCORTISONE BUTYRATE [Suspect]
     Active Substance: HYDROCORTISONE BUTYRATE
     Indication: Adrenogenital syndrome
     Dosage: 12 MILLIGRAM/SQ. METER, QD (8-12 MG/M2/DAY IN THREE DIVIDED DOSES)
     Route: 048
  2. HYDROCORTISONE BUTYRATE [Suspect]
     Active Substance: HYDROCORTISONE BUTYRATE
     Dosage: UNK, (8-12 MG/M2/DAY IN THREE DIVIDED DOSES)
     Route: 048
  3. HYDROCORTISONE BUTYRATE [Suspect]
     Active Substance: HYDROCORTISONE BUTYRATE
     Dosage: 8 MILLIGRAM/SQ. METER, QD (8-12 MG/M2/DAY IN THREE DIVIDED DOSES)
     Route: 048

REACTIONS (1)
  - Hypertension [Unknown]
